FAERS Safety Report 10997766 (Version 2)
Quarter: 2017Q1

REPORT INFORMATION
  Report Type: Spontaneous
  Country: US (occurrence: US)
  Receive Date: 20150408
  Receipt Date: 20170116
  Transmission Date: 20170428
  Serious: Yes (Other)
  Sender: FDA-Public Use
  Company Number: US-ELI_LILLY_AND_COMPANY-US201504002144

PATIENT
  Sex: Female
  Weight: 92 kg

DRUGS (3)
  1. CYMBALTA [Suspect]
     Active Substance: DULOXETINE HYDROCHLORIDE
     Indication: ARTHRALGIA
     Dosage: 20 MG, QD
     Route: 065
     Dates: end: 201205
  2. CYMBALTA [Suspect]
     Active Substance: DULOXETINE HYDROCHLORIDE
     Indication: ANXIETY
     Dosage: 30 MG, FOR SEVEN DAYS
     Route: 065
     Dates: start: 20110324
  3. CYMBALTA [Suspect]
     Active Substance: DULOXETINE HYDROCHLORIDE
     Indication: DEPRESSION
     Dosage: 60 MG, QD
     Route: 065
     Dates: start: 20110401

REACTIONS (26)
  - Mood swings [Unknown]
  - Sensory disturbance [Unknown]
  - Lethargy [Unknown]
  - Suicidal ideation [Unknown]
  - Irritability [Unknown]
  - Paraesthesia [Unknown]
  - Nightmare [Unknown]
  - Sleep disorder [Unknown]
  - Nausea [Unknown]
  - Fatigue [Unknown]
  - Insomnia [Unknown]
  - Dysphoria [Unknown]
  - Confusional state [Unknown]
  - Vomiting [Unknown]
  - Anxiety [Unknown]
  - Vertigo [Unknown]
  - Depressed mood [Unknown]
  - Feeling of despair [Unknown]
  - Diarrhoea [Unknown]
  - Headache [Unknown]
  - Agitation [Unknown]
  - Tinnitus [Unknown]
  - Drug withdrawal syndrome [Unknown]
  - Hyperhidrosis [Unknown]
  - Dizziness [Unknown]
  - Tremor [Unknown]
